FAERS Safety Report 26025827 (Version 1)
Quarter: 2025Q4

REPORT INFORMATION
  Report Type: Spontaneous
  Country: CN (occurrence: CN)
  Receive Date: 20251111
  Receipt Date: 20251111
  Transmission Date: 20260118
  Serious: Yes (Other)
  Sender: BAYER HEALTHCARE PHARMACEUTICALS INC.
  Company Number: CN-BAYER-2025A146999

PATIENT
  Sex: Female

DRUGS (1)
  1. MIRENA [Suspect]
     Active Substance: LEVONORGESTREL
     Dosage: 20?G/DAY
     Route: 015
     Dates: start: 2022

REACTIONS (5)
  - Immunodeficiency [None]
  - Heavy menstrual bleeding [Not Recovered/Not Resolved]
  - Temperature intolerance [None]
  - Diarrhoea [None]
  - Therapeutic product effect decreased [None]

NARRATIVE: CASE EVENT DATE: 20250101
